FAERS Safety Report 13965172 (Version 1)
Quarter: 2017Q3

REPORT INFORMATION
  Report Type: Spontaneous
  Country: US (occurrence: US)
  Receive Date: 20170913
  Receipt Date: 20170913
  Transmission Date: 20171128
  Serious: Yes (Hospitalization, Other)
  Sender: FDA-Public Use
  Company Number: US-ASTRAZENECA-2017SE91103

PATIENT
  Sex: Male

DRUGS (20)
  1. PERCOCET [Concomitant]
     Active Substance: ACETAMINOPHEN\OXYCODONE HYDROCHLORIDE
     Indication: BACK DISORDER
     Dosage: 10MG AND 325MG
  2. FLUOXETINE HYDROCHLORIDE. [Concomitant]
     Active Substance: FLUOXETINE HYDROCHLORIDE
     Indication: DEPRESSION
     Dosage: 20MG, THREE CAPSULES ONCE A DAY
     Route: 048
  3. LYRICA [Suspect]
     Active Substance: PREGABALIN
     Indication: NEUROPATHY PERIPHERAL
     Route: 048
     Dates: start: 2015, end: 20170729
  4. ONDANSETRON [Concomitant]
     Active Substance: ONDANSETRON
     Indication: NAUSEA
     Dosage: SMG, TO TAKE UNDER THE TONGUE, AS NEEDED
  5. CYCLOBENZAPRINE. [Concomitant]
     Active Substance: CYCLOBENZAPRINE
     Indication: MUSCLE RELAXANT THERAPY
     Dosage: 10 MG ONE AT NIGHT
  6. CLONAZEPAM. [Concomitant]
     Active Substance: CLONAZEPAM
     Indication: NEUROPATHY PERIPHERAL
     Dosage: 1MG, FOUR TIMES A DAY AND A FIFTH DOSE AS NEEDED
  7. CLONAZEPAM. [Concomitant]
     Active Substance: CLONAZEPAM
     Indication: PANIC ATTACK
     Dosage: 1MG, FOUR TIMES A DAY AND A FIFTH DOSE AS NEEDED
  8. KLOR-CON [Concomitant]
     Active Substance: POTASSIUM CHLORIDE
     Indication: ELECTROLYTE SUBSTITUTION THERAPY
     Dosage: 20MEQ TABLETS TWICE A DAY WITH THE FUROSEMIDE
  9. ROSUVASTATIN. [Suspect]
     Active Substance: ROSUVASTATIN
     Indication: BLOOD CHOLESTEROL
     Dosage: 40.0MG UNKNOWN
     Route: 048
  10. GABAPENTIN. [Suspect]
     Active Substance: GABAPENTIN
     Indication: NEUROPATHY PERIPHERAL
     Route: 048
     Dates: end: 2015
  11. FUROSEMIDE. [Concomitant]
     Active Substance: FUROSEMIDE
     Indication: PROPHYLAXIS
     Route: 048
  12. ASPIRIN. [Concomitant]
     Active Substance: ASPIRIN
     Indication: ANTICOAGULANT THERAPY
     Dosage: 325MG
  13. NITROSTAT [Concomitant]
     Active Substance: NITROGLYCERIN
     Indication: ANGINA PECTORIS
     Dosage: 0.4MG UNDER THE TONGUE
  14. METOPROLOL TARTRATE. [Suspect]
     Active Substance: METOPROLOL TARTRATE
     Indication: BLOOD PRESSURE MEASUREMENT
     Route: 048
  15. LISINOPRIL HCTZ [Suspect]
     Active Substance: HYDROCHLOROTHIAZIDE\LISINOPRIL
     Indication: BLOOD PRESSURE MEASUREMENT
     Dosage: 20/12.5MG,
     Route: 048
  16. GABAPENTIN. [Suspect]
     Active Substance: GABAPENTIN
     Indication: PAIN IN EXTREMITY
     Route: 048
     Dates: end: 2015
  17. SPIRONOLACTONE. [Concomitant]
     Active Substance: SPIRONOLACTONE
     Indication: PROPHYLAXIS
  18. PANTOPRAZOLE [Concomitant]
     Active Substance: PANTOPRAZOLE
     Indication: GASTROOESOPHAGEAL REFLUX DISEASE
     Dosage: 40 MG
  19. TAMSULOSIN HYDROCHLORIDE. [Concomitant]
     Active Substance: TAMSULOSIN HYDROCHLORIDE
     Indication: BENIGN PROSTATIC HYPERPLASIA
     Dosage: 0.4MG ONCE A DAY
  20. CLOPIDOGREL [Concomitant]
     Active Substance: CLOPIDOGREL BISULFATE
     Indication: ANTIPLATELET THERAPY
     Dosage: 75MG
     Route: 065

REACTIONS (11)
  - Pain in extremity [Not Recovered/Not Resolved]
  - Blood cholesterol abnormal [Unknown]
  - Blood pressure abnormal [Unknown]
  - Peripheral swelling [Unknown]
  - Myocardial infarction [Unknown]
  - Nausea [Unknown]
  - Benign prostatic hyperplasia [Unknown]
  - Penile wart [Unknown]
  - Cystitis [Unknown]
  - Panic attack [Unknown]
  - Angina pectoris [Unknown]

NARRATIVE: CASE EVENT DATE: 20170630
